FAERS Safety Report 9472819 (Version 2)
Quarter: 2013Q3

REPORT INFORMATION
  Report Type: Report from Study
  Country: DK (occurrence: DK)
  Receive Date: 20130823
  Receipt Date: 20130823
  Transmission Date: 20140515
  Serious: Yes (Death, Other)
  Sender: FDA-Public Use
  Company Number: PHHO2011DK018963

PATIENT
  Age: 81 Year
  Sex: Male
  Weight: 83.1 kg

DRUGS (11)
  1. BLINDED ENALAPRIL [Suspect]
     Indication: CARDIAC FAILURE CHRONIC
     Dosage: DOUBLE BLINDED
     Dates: start: 20101221, end: 20110909
  2. BLINDED LCZ696 [Suspect]
     Indication: CARDIAC FAILURE CHRONIC
     Dosage: DOUBLE BLINDED
     Dates: start: 20101221, end: 20110909
  3. BLINDED NO TREATMENT RECEIVED [Suspect]
     Indication: CARDIAC FAILURE CHRONIC
     Dosage: DOUBLE BLINDED
     Dates: start: 20101221, end: 20110909
  4. MEXITIL [Suspect]
     Indication: VENTRICULAR TACHYCARDIA
     Dosage: 50 MG, UNK
     Dates: start: 2008
  5. MULTAQ [Suspect]
     Dosage: UNK
     Dates: start: 20110912, end: 20110924
  6. FURIX [Concomitant]
     Indication: CARDIAC FAILURE
     Dosage: 40 MG, UNK
     Dates: start: 2005
  7. ALLOPURINOL [Concomitant]
     Indication: GOUT
     Dosage: 200 MG, UNK
     Dates: start: 20110607
  8. IMDUR [Concomitant]
     Indication: ANGINA PECTORIS
     Dosage: 30 MG, UNK
     Dates: start: 2007
  9. SELIRAN [Concomitant]
     Indication: CARDIAC FAILURE
     Dosage: 47.5 MG, UNK
     Dates: start: 2005
  10. ACETYLSALICYLIC ACID [Concomitant]
  11. WARFARIN [Concomitant]

REACTIONS (2)
  - Cardiac failure [Fatal]
  - Concomitant disease progression [Fatal]
